FAERS Safety Report 9437874 (Version 1)
Quarter: 2013Q3

REPORT INFORMATION
  Report Type: Other
  Country: US (occurrence: US)
  Receive Date: 20130802
  Receipt Date: 20130802
  Transmission Date: 20140515
  Serious: Yes (Other)
  Sender: FDA-Public Use
  Company Number: US-BRISTOL-MYERS SQUIBB COMPANY-19130731

PATIENT
  Age: 48 Year
  Sex: Male

DRUGS (2)
  1. IFOSFAMIDE [Suspect]
     Dosage: 1DF:2G/SQ.M,INC TO 3G/SQ.M,RED 2G/SQM,3.6G/SQ.METER,4G/SQ.METER.
  2. WARFARIN SODIUM [Suspect]
     Indication: DEEP VEIN THROMBOSIS

REACTIONS (3)
  - Nephropathy toxic [Unknown]
  - Thrombocytopenia [Unknown]
  - Epistaxis [Unknown]
